FAERS Safety Report 18446730 (Version 1)
Quarter: 2020Q4

REPORT INFORMATION
  Report Type: Report from Study
  Country: GB (occurrence: GB)
  Receive Date: 20201030
  Receipt Date: 20201030
  Transmission Date: 20210114
  Serious: Yes (Other)
  Sender: FDA-Public Use
  Company Number: NVSC2020GB288605

PATIENT
  Age: 66 Year
  Sex: Male

DRUGS (2)
  1. SOTALOL. [Concomitant]
     Active Substance: SOTALOL
     Indication: PRODUCT USED FOR UNKNOWN INDICATION
     Dosage: UNK
     Route: 065
  2. ENTRESTO [Suspect]
     Active Substance: SACUBITRIL\VALSARTAN
     Indication: CARDIAC FAILURE
     Dosage: 200 MG (97MG/103MG), BID
     Route: 048
     Dates: start: 20200302

REACTIONS (4)
  - Tachyarrhythmia [Unknown]
  - Dizziness [Unknown]
  - Malaise [Unknown]
  - Chest pain [Unknown]

NARRATIVE: CASE EVENT DATE: 20201019
